FAERS Safety Report 8815160 (Version 1)
Quarter: 2012Q4

REPORT INFORMATION
  Report Type: 
  Country: US (occurrence: US)
  Receive Date: 20120928
  Receipt Date: 20120928
  Transmission Date: 20130627
  Serious: Yes (Other)
  Sender: FDA-Public Use
  Company Number: US-JNJFOC-20120504498

PATIENT

DRUGS (2)
  1. EVICEL [Suspect]
     Indication: OFF LABEL USE
     Dosage: 2 ml and 5 ml
     Route: 050
  2. ALL OTHER THERAPEUTIC PRODUCT [Concomitant]
     Indication: OFF LABEL USE
     Route: 050

REACTIONS (2)
  - Procedural complication [Recovered/Resolved]
  - Drug ineffective for unapproved indication [Unknown]
